FAERS Safety Report 10915643 (Version 1)
Quarter: 2015Q1

REPORT INFORMATION
  Report Type: Spontaneous
  Country: US (occurrence: None)
  Receive Date: 20150311
  Receipt Date: 20150311
  Transmission Date: 20150721
  Serious: Yes (Hospitalization)
  Sender: FDA-Public Use
  Company Number: None

PATIENT
  Age: 74 Year
  Sex: Male
  Weight: 71.6 kg

DRUGS (1)
  1. VELCADE [Suspect]
     Active Substance: BORTEZOMIB
     Dates: end: 20150226

REACTIONS (7)
  - Pneumonia [None]
  - Oxygen saturation decreased [None]
  - Lung infiltration [None]
  - Dyspnoea [None]
  - Cough [None]
  - Asthma [None]
  - Cardiac disorder [None]

NARRATIVE: CASE EVENT DATE: 20150309
